FAERS Safety Report 24161451 (Version 5)
Quarter: 2025Q2

REPORT INFORMATION
  Report Type: Spontaneous
  Country: US (occurrence: US)
  Receive Date: 20240801
  Receipt Date: 20250522
  Transmission Date: 20250716
  Serious: No
  Sender: SANOFI AVENTIS
  Company Number: US-SA-SAC20240716000064

PATIENT
  Age: 59 Year
  Sex: Female

DRUGS (2)
  1. DUPIXENT [Suspect]
     Active Substance: DUPILUMAB
     Indication: Asthma
     Dosage: 300 MG, QOW
     Route: 058
     Dates: start: 202405
  2. DUPIXENT [Suspect]
     Active Substance: DUPILUMAB
     Indication: Rhinitis allergic

REACTIONS (14)
  - Bone pain [Unknown]
  - Palpitations [Unknown]
  - Pain [Unknown]
  - Illness [Unknown]
  - Cough [Unknown]
  - Flushing [Unknown]
  - Visual impairment [Unknown]
  - Pruritus [Unknown]
  - Skin burning sensation [Unknown]
  - Asthma [Unknown]
  - Injection site pain [Unknown]
  - Asthma [Unknown]
  - Product dose omission issue [Unknown]
  - Product use in unapproved indication [Unknown]

NARRATIVE: CASE EVENT DATE: 20240101
